FAERS Safety Report 4952006-1 (Version None)
Quarter: 2006Q1

REPORT INFORMATION
  Report Type: 
  Country: None (occurrence: None)
  Receive Date: 20060322
  Receipt Date: 20060322
  Transmission Date: 20060701
  Serious: Yes (Death)
  Sender: FDA-Public Use
  Company Number: None

PATIENT
  Sex: Male
  Weight: 3.1752 kg

DRUGS (1)
  1. AMBIEN [Suspect]

REACTIONS (5)
  - DRUG EXPOSURE DURING PREGNANCY [None]
  - DRUG PRESCRIBING ERROR [None]
  - FOETAL HEART RATE DECREASED [None]
  - OFF LABEL USE [None]
  - STILLBIRTH [None]
